FAERS Safety Report 22162818 (Version 1)
Quarter: 2023Q1

REPORT INFORMATION
  Report Type: Spontaneous
  Country: JP (occurrence: JP)
  Receive Date: 20230331
  Receipt Date: 20230331
  Transmission Date: 20230418
  Serious: Yes (Other)
  Sender: FDA-Public Use
  Company Number: JP-CHEMOCENTRYX, INC.-2023JPCCXI0963

PATIENT

DRUGS (3)
  1. TAVNEOS [Suspect]
     Active Substance: AVACOPAN
     Indication: Microscopic polyangiitis
     Dosage: 60 MG, (PER DAY)
     Route: 048
     Dates: start: 20230217
  2. RITUXIMAB [Concomitant]
     Active Substance: RITUXIMAB
     Indication: Microscopic polyangiitis
     Dosage: 450 MG, QD
     Route: 042
     Dates: start: 20230227, end: 20230227
  3. UNSPECIFIED INGREDIENT [Concomitant]
     Active Substance: UNSPECIFIED INGREDIENT
     Indication: Microscopic polyangiitis
     Dosage: CONTINUE (PER DAY)
     Dates: start: 20230217

REACTIONS (2)
  - Foot fracture [Recovering/Resolving]
  - Liver disorder [Recovered/Resolved]
